FAERS Safety Report 17820268 (Version 1)
Quarter: 2020Q2

REPORT INFORMATION
  Report Type: Spontaneous
  Country: US (occurrence: US)
  Receive Date: 20200525
  Receipt Date: 20200525
  Transmission Date: 20200714
  Serious: No
  Sender: FDA-Public Use
  Company Number: US-ALEMBIC PHARMACUETICALS LIMITED-2020SCAL000214

PATIENT
  Age: 83 Year
  Sex: Female

DRUGS (1)
  1. DEFERASIROX. [Suspect]
     Active Substance: DEFERASIROX
     Indication: PRODUCT USED FOR UNKNOWN INDICATION
     Dosage: 125 MILLIGRAM, (9 TABLETS A DAY)
     Route: 048
     Dates: start: 20200328

REACTIONS (4)
  - Product substitution issue [Unknown]
  - Oropharyngeal pain [Not Recovered/Not Resolved]
  - Product solubility abnormal [Unknown]
  - Oropharyngeal discomfort [Not Recovered/Not Resolved]
